FAERS Safety Report 5948330-6 (Version None)
Quarter: 2008Q4

REPORT INFORMATION
  Report Type: 
  Country: None (occurrence: None)
  Receive Date: 20081110
  Receipt Date: 20081110
  Transmission Date: 20090506
  Serious: Yes (Hospitalization)
  Sender: FDA-Public Use
  Company Number: None

PATIENT
  Age: 18 Year
  Sex: Female
  Weight: 58.9676 kg

DRUGS (2)
  1. VANCOMYCIN [Suspect]
     Indication: PERIORBITAL ABSCESS
     Dosage: 1000 MG EVERY 12 HOURS IV
     Route: 042
     Dates: start: 20081104, end: 20081106
  2. VANCOMYCIN [Suspect]
     Indication: STAPHYLOCOCCAL ABSCESS
     Dosage: 1000 MG EVERY 12 HOURS IV
     Route: 042
     Dates: start: 20081104, end: 20081106

REACTIONS (1)
  - RENAL FAILURE ACUTE [None]
